FAERS Safety Report 24680558 (Version 1)
Quarter: 2024Q4

REPORT INFORMATION
  Report Type: Other
  Country: FR (occurrence: FR)
  Receive Date: 20241129
  Receipt Date: 20241129
  Transmission Date: 20250114
  Serious: Yes (Other)
  Sender: DECIPHERA PHARMACEUTICALS
  Company Number: FR-DECIPHERA PHARMACEUTICALS LLC-2022FR001093

PATIENT
  Sex: Male

DRUGS (1)
  1. QINLOCK [Suspect]
     Active Substance: RIPRETINIB
     Indication: Gastrointestinal stromal tumour
     Dosage: 150 MILLIGRAM, QD
     Route: 048

REACTIONS (1)
  - Hyperbilirubinaemia [Recovered/Resolved]
